FAERS Safety Report 17715979 (Version 1)
Quarter: 2020Q2

REPORT INFORMATION
  Report Type: Spontaneous
  Country: NL (occurrence: NL)
  Receive Date: 20200428
  Receipt Date: 20200428
  Transmission Date: 20200714
  Serious: Yes (Hospitalization)
  Sender: FDA-Public Use
  Company Number: NL-AUROBINDO-AUR-APL-2020-020655

PATIENT
  Sex: Female

DRUGS (5)
  1. CARBOPLATIN. [Suspect]
     Active Substance: CARBOPLATIN
     Indication: NON-SMALL CELL LUNG CANCER
     Dosage: UNK (FIRST CYCLE OF NIVO/IPI CARBO/ETOPOSIDE BETWEEN ON 1-APRIL- 2020)
     Route: 065
     Dates: start: 20200402, end: 20200403
  2. NIVOLUMAB [Suspect]
     Active Substance: NIVOLUMAB
     Indication: NON-SMALL CELL LUNG CANCER
     Dosage: UNK (FIRST CYCLE OF NIVO/IPI CARBO/ETOPOSIDE BETWEEN ON 1-APRIL- 2020)
     Route: 065
     Dates: start: 20200401, end: 202004
  3. ETOPOSIDE. [Suspect]
     Active Substance: ETOPOSIDE
     Indication: NON-SMALL CELL LUNG CANCER
     Dosage: UNK (FIRST CYCLE OF NIVO/IPI CARBO/ETOPOSIDE BETWEEN ON 1-APRIL- 2020)
     Route: 065
     Dates: start: 20200402, end: 20200403
  4. IPILIMUMAB [Suspect]
     Active Substance: IPILIMUMAB
     Indication: NON-SMALL CELL LUNG CANCER
     Dosage: UNK (FIRST CYCLE OF NIVO/IPI CARBO/ETOPOSIDE BETWEEN ON 1-APRIL- 2020)
     Route: 065
     Dates: start: 20200401, end: 202004
  5. DICLOFENAC [Suspect]
     Active Substance: DICLOFENAC
     Indication: MUSCULOSKELETAL PAIN
     Dosage: UNK
     Route: 065
     Dates: start: 20200403

REACTIONS (3)
  - Vomiting [Recovered/Resolved]
  - Nausea [Recovered/Resolved]
  - Product use in unapproved indication [Unknown]

NARRATIVE: CASE EVENT DATE: 20200402
